FAERS Safety Report 14417674 (Version 1)
Quarter: 2018Q1

REPORT INFORMATION
  Report Type: Spontaneous
  Country: US (occurrence: US)
  Receive Date: 20180122
  Receipt Date: 20180122
  Transmission Date: 20180509
  Serious: No
  Sender: FDA-Public Use
  Company Number: US-GLAXOSMITHKLINE-US2018007796

PATIENT
  Sex: Female

DRUGS (5)
  1. ASMANEX [Concomitant]
     Active Substance: MOMETASONE FUROATE
  2. SINGULAIR [Concomitant]
     Active Substance: MONTELUKAST SODIUM
  3. VENTOLIN HFA [Suspect]
     Active Substance: ALBUTEROL SULFATE
     Indication: NASOPHARYNGITIS
  4. VENTOLIN HFA [Suspect]
     Active Substance: ALBUTEROL SULFATE
     Indication: ASTHMA
     Dosage: UNK UNK, PRN
     Route: 055
     Dates: start: 2015
  5. WESTHROID [Concomitant]
     Active Substance: THYROGLOBULIN

REACTIONS (3)
  - Nasopharyngitis [Recovered/Resolved]
  - Blood bromide increased [Not Recovered/Not Resolved]
  - Hypothyroidism [Not Recovered/Not Resolved]

NARRATIVE: CASE EVENT DATE: 2017
